FAERS Safety Report 7957702-X (Version None)
Quarter: 2011Q4

REPORT INFORMATION
  Report Type: 
  Country: None (occurrence: None)
  Receive Date: 20111205
  Receipt Date: 20111129
  Transmission Date: 20120403
  Serious: Yes (Hospitalization)
  Sender: FDA-Public Use
  Company Number: PHHY2011NL101305

PATIENT
  Sex: Female

DRUGS (10)
  1. XELODA [Concomitant]
     Dosage: 650 2X UNK
  2. ZOMETA [Suspect]
     Indication: BREAST CANCER METASTATIC
     Dosage: 4 MG/5ML PER 28 DAYS
     Route: 042
     Dates: start: 20110829
  3. HALOPERIDOL [Concomitant]
     Dosage: 0.5 2X
  4. ZOMETA [Suspect]
     Dosage: 4 MG/5ML PER 28 DAYS
     Route: 042
     Dates: start: 20111027
  5. PHENPROCOUMON [Concomitant]
     Dosage: UNK
  6. DEVARON [Concomitant]
     Dosage: UNK
  7. PANTOPRAZOLE [Concomitant]
     Dosage: UNK UKN, UNK
  8. TEMAZEPAM [Concomitant]
     Dosage: 20 AS NEEDED UNK
  9. ALVESCO [Concomitant]
     Dosage: UNK UKN, UNK
  10. FORADIL [Concomitant]
     Dosage: UNK UKN, UNK

REACTIONS (3)
  - DAYDREAMING [None]
  - MALAISE [None]
  - FATIGUE [None]
